FAERS Safety Report 25434341 (Version 2)
Quarter: 2025Q3

REPORT INFORMATION
  Report Type: Spontaneous
  Country: JP (occurrence: JP)
  Receive Date: 20250613
  Receipt Date: 20250707
  Transmission Date: 20251021
  Serious: Yes (Other)
  Sender: MERCK SHARP & DOHME LLC
  Company Number: JP-009507513-2293153

PATIENT
  Age: 8 Decade
  Sex: Female
  Weight: 36 kg

DRUGS (3)
  1. BELSOMRA [Suspect]
     Active Substance: SUVOREXANT
     Route: 048
  2. ZOPICLONE [Suspect]
     Active Substance: ZOPICLONE
  3. PAROXETINE [Concomitant]
     Active Substance: PAROXETINE

REACTIONS (4)
  - Loss of consciousness [Unknown]
  - Overdose [Unknown]
  - Drug level increased [Unknown]
  - Toxicity to various agents [Unknown]
